FAERS Safety Report 10522737 (Version 2)
Quarter: 2014Q4

REPORT INFORMATION
  Report Type: Spontaneous
  Country: CH (occurrence: None)
  Receive Date: 20141014
  Receipt Date: 20141205
  Transmission Date: 20150528
  Serious: Yes (Hospitalization, Other)
  Sender: FDA-Public Use
  Company Number: 20140641

PATIENT
  Age: 22 Year
  Sex: Female
  Weight: 70 kg

DRUGS (1)
  1. FERINJECT [Suspect]
     Active Substance: FERRIC CARBOXYMALTOSE
     Indication: IRON DEFICIENCY ANAEMIA
     Route: 042
     Dates: start: 20140908, end: 20140908

REACTIONS (10)
  - Arrhythmia [None]
  - Vulvovaginal mycotic infection [None]
  - Incorrect drug administration rate [None]
  - Gastrointestinal disorder [None]
  - Weight increased [None]
  - Malaise [None]
  - Blood pressure decreased [None]
  - Hyperhidrosis [None]
  - Exposure during pregnancy [None]
  - Bradycardia [None]

NARRATIVE: CASE EVENT DATE: 2014
